FAERS Safety Report 4339048-4 (Version None)
Quarter: 2004Q2

REPORT INFORMATION
  Report Type: 
  Country: None (occurrence: None)
  Receive Date: 20040412
  Receipt Date: 20040206
  Transmission Date: 20050107
  Serious: Yes (Hospitalization)
  Sender: FDA-Public Use
  Company Number: 2004008409

PATIENT
  Age: 69 Year
  Sex: Male

DRUGS (9)
  1. ATORVASTATIN (ATORVASTATIN) [Suspect]
     Indication: ACUTE CORONARY SYNDROME
     Dosage: 80 MG (DAILY), ORAL
     Route: 048
     Dates: start: 20010809
  2. GATIFLOXACIN [Suspect]
     Indication: ACUTE CORONARY SYNDROME
     Dosage: 400 MG (DAILY), ORAL
     Route: 048
     Dates: start: 20010823
  3. MULTIVITAMIN [Concomitant]
  4. ACETYLSALICYLIC ACID SRT [Concomitant]
  5. METOPROLOL (METOPROLOL) [Concomitant]
  6. FUROSEMIDE [Concomitant]
  7. LISINOPRIL [Concomitant]
  8. ALLOPURINOL [Concomitant]
  9. LORATADINE [Concomitant]

REACTIONS (21)
  - ABDOMINAL RIGIDITY [None]
  - ABDOMINAL TENDERNESS [None]
  - ASPARTATE AMINOTRANSFERASE INCREASED [None]
  - BENIGN PROSTATIC HYPERPLASIA [None]
  - BILE DUCT STONE [None]
  - BILIARY DILATATION [None]
  - BLADDER DISTENSION [None]
  - BLOOD ALKALINE PHOSPHATASE INCREASED [None]
  - BLOOD BILIRUBIN [None]
  - BLOOD CREATINE INCREASED [None]
  - BLOOD GLUCOSE INCREASED [None]
  - BLOOD UREA INCREASED [None]
  - BODY TEMPERATURE DECREASED [None]
  - CHOLECYSTITIS ACUTE [None]
  - CHOLELITHIASIS [None]
  - GALLBLADDER DISORDER [None]
  - GAMMA-GLUTAMYLTRANSFERASE INCREASED [None]
  - HAEMATURIA [None]
  - JAUNDICE [None]
  - OEDEMA PERIPHERAL [None]
  - URINARY RETENTION [None]
